FAERS Safety Report 15256434 (Version 1)
Quarter: 2018Q3

REPORT INFORMATION
  Report Type: Spontaneous
  Country: US (occurrence: US)
  Receive Date: 20180808
  Receipt Date: 20180808
  Transmission Date: 20181010
  Serious: No
  Sender: FDA-Public Use
  Company Number: US-BIOGEN-2018BI00617288

PATIENT
  Sex: Female

DRUGS (16)
  1. GILENYA [Concomitant]
     Active Substance: FINGOLIMOD HYDROCHLORIDE
     Indication: MULTIPLE SCLEROSIS
  2. NUEDEXTA [Concomitant]
     Active Substance: DEXTROMETHORPHAN HYDROBROMIDE\QUINIDINE SULFATE
     Indication: MULTIPLE SCLEROSIS
  3. KEPPRA [Concomitant]
     Active Substance: LEVETIRACETAM
     Indication: MULTIPLE SCLEROSIS
  4. TIZANIDINE. [Concomitant]
     Active Substance: TIZANIDINE
     Indication: MULTIPLE SCLEROSIS
  5. VIMPAT [Concomitant]
     Active Substance: LACOSAMIDE
     Indication: MULTIPLE SCLEROSIS
  6. COMBIVENT RESPIMAT [Concomitant]
     Active Substance: ALBUTEROL SULFATE\IPRATROPIUM BROMIDE
     Indication: MULTIPLE SCLEROSIS
  7. DOCUSATE [Concomitant]
     Active Substance: DOCUSATE
     Indication: MULTIPLE SCLEROSIS
  8. METOPROLOL TARTRATE. [Concomitant]
     Active Substance: METOPROLOL TARTRATE
     Indication: MULTIPLE SCLEROSIS
  9. CALCIUM [Concomitant]
     Active Substance: CALCIUM
     Indication: MULTIPLE SCLEROSIS
  10. PHENYTOIN. [Concomitant]
     Active Substance: PHENYTOIN
     Indication: MULTIPLE SCLEROSIS
  11. TYSABRI [Suspect]
     Active Substance: NATALIZUMAB
     Indication: MULTIPLE SCLEROSIS
     Dosage: INFUSED OVER 1 HOUR
     Route: 042
  12. BREO ELLIPTA [Concomitant]
     Active Substance: FLUTICASONE FUROATE\VILANTEROL TRIFENATATE
     Indication: MULTIPLE SCLEROSIS
  13. LEVOTHYROXINE SODIUM. [Concomitant]
     Active Substance: LEVOTHYROXINE SODIUM
     Indication: MULTIPLE SCLEROSIS
  14. OMEPRAZOLE. [Concomitant]
     Active Substance: OMEPRAZOLE
     Indication: MULTIPLE SCLEROSIS
  15. PANTOPRAZOLE [Concomitant]
     Active Substance: PANTOPRAZOLE
     Indication: MULTIPLE SCLEROSIS
  16. MIRALAX [Concomitant]
     Active Substance: POLYETHYLENE GLYCOL 3350
     Indication: MULTIPLE SCLEROSIS

REACTIONS (2)
  - Multiple sclerosis relapse [Recovered/Resolved]
  - Treatment failure [Unknown]
